FAERS Safety Report 6266530-5 (Version None)
Quarter: 2009Q3

REPORT INFORMATION
  Report Type: 
  Country: None (occurrence: None)
  Receive Date: 20090710
  Receipt Date: 20090701
  Transmission Date: 20100115
  Serious: Yes (Other)
  Sender: FDA-Public Use
  Company Number: 2009SP014582

PATIENT
  Age: 47 Year
  Sex: Male

DRUGS (12)
  1. PEG-INTRON [Suspect]
     Indication: HEPATITIS C
     Dosage: SC
     Route: 058
     Dates: start: 20090326, end: 20090601
  2. RIBAVIRIN [Suspect]
     Indication: HEPATITIS C
     Dosage: PO
     Route: 048
     Dates: start: 20090326, end: 20090601
  3. AMBIEN [Concomitant]
  4. DUETACT (THIAZOLIDINEDIONE/SULFONYLUREA) [Concomitant]
  5. ...................... [Concomitant]
  6. METFORMIN HCL [Concomitant]
  7. OMEPRAZOLE [Concomitant]
  8. PRAVASTATIN SODIUM [Concomitant]
  9. RAMIPRIL [Concomitant]
  10. XANAX [Concomitant]
  11. EFFEXOR [Concomitant]
  12. RAMIPRIL [Concomitant]

REACTIONS (9)
  - DECREASED APPETITE [None]
  - DEHYDRATION [None]
  - EAR INFECTION [None]
  - EAR PAIN [None]
  - FATIGUE [None]
  - HYPOACUSIS [None]
  - SOMNOLENCE [None]
  - TYMPANIC MEMBRANE PERFORATION [None]
  - WEIGHT DECREASED [None]
